FAERS Safety Report 11502231 (Version 1)
Quarter: 2015Q3

REPORT INFORMATION
  Report Type: Report from Study
  Country: LB (occurrence: LB)
  Receive Date: 20150914
  Receipt Date: 20150914
  Transmission Date: 20151125
  Serious: Yes (Hospitalization, Other)
  Sender: FDA-Public Use
  Company Number: PHHY2015LB105003

PATIENT
  Age: 67 Year
  Sex: Female

DRUGS (1)
  1. AFINITOR [Suspect]
     Active Substance: EVEROLIMUS
     Indication: BREAST CANCER
     Dosage: 10 OT, QD
     Route: 048

REACTIONS (11)
  - Aphthous ulcer [Recovered/Resolved]
  - Flushing [Unknown]
  - Erythema [Unknown]
  - Pneumonia [Unknown]
  - Sneezing [Unknown]
  - Cough [Unknown]
  - Respiratory tract infection [Recovered/Resolved]
  - Pyrexia [Recovered/Resolved]
  - Hypotension [Unknown]
  - Respiratory distress [Unknown]
  - Respiratory failure [Unknown]

NARRATIVE: CASE EVENT DATE: 20150811
